FAERS Safety Report 17806026 (Version 1)
Quarter: 2020Q2

REPORT INFORMATION
  Report Type: Spontaneous
  Country: FR (occurrence: FR)
  Receive Date: 20200520
  Receipt Date: 20200520
  Transmission Date: 20200714
  Serious: Yes (Death)
  Sender: FDA-Public Use
  Company Number: FR-ABBVIE-20K-056-3408720-00

PATIENT
  Age: 76 Year
  Sex: Male
  Weight: 91 kg

DRUGS (2)
  1. KALETRA [Suspect]
     Active Substance: LOPINAVIR\RITONAVIR
     Indication: CORONAVIRUS INFECTION
     Route: 048
     Dates: start: 20200315, end: 20200319
  2. PLAQUENIL [Suspect]
     Active Substance: HYDROXYCHLOROQUINE SULFATE
     Indication: CORONAVIRUS INFECTION
     Route: 048
     Dates: start: 20200320, end: 20200328

REACTIONS (3)
  - Condition aggravated [Fatal]
  - Coronavirus infection [Fatal]
  - Septic shock [Fatal]

NARRATIVE: CASE EVENT DATE: 20200315
